FAERS Safety Report 8189932-9 (Version None)
Quarter: 2012Q1

REPORT INFORMATION
  Report Type: 
  Country: None (occurrence: None)
  Receive Date: 20120307
  Receipt Date: 20120301
  Transmission Date: 20120608
  Serious: Yes (Death, Other)
  Sender: FDA-Public Use
  Company Number: JP-ASTELLAS-2011JP002088

PATIENT
  Age: 42 Year
  Sex: Male

DRUGS (5)
  1. METHYLPREDNISOLONE [Concomitant]
     Indication: PROPHYLAXIS AGAINST GRAFT VERSUS HOST DISEASE
     Dosage: 1 MG/KG, UNKNOWN/D
     Route: 065
  2. STEROID [Concomitant]
     Route: 065
  3. MYCOPHENOLATE MOFETIL [Concomitant]
     Route: 065
  4. PROGRAF [Suspect]
     Indication: PROPHYLAXIS AGAINST GRAFT VERSUS HOST DISEASE
     Dosage: UNK
     Route: 041
  5. IMMUNE GLOBULIN NOS [Concomitant]
     Route: 065

REACTIONS (5)
  - CYTOMEGALOVIRUS VIRAEMIA [None]
  - ENDOCARDITIS BACTERIAL [None]
  - VIRAL HAEMORRHAGIC CYSTITIS [None]
  - DRUG INEFFECTIVE [None]
  - ACUTE GRAFT VERSUS HOST DISEASE [None]
